FAERS Safety Report 5271085-8 (Version None)
Quarter: 2007Q1

REPORT INFORMATION
  Report Type: 
  Country: None (occurrence: None)
  Receive Date: 20070321
  Receipt Date: 20070316
  Transmission Date: 20070707
  Serious: Yes (Disabling)
  Sender: FDA-Public Use
  Company Number: JP-JPN-A200700845

PATIENT
  Age: 58 Year
  Sex: Male
  Weight: 69 kg

DRUGS (9)
  1. SEREVENT [Suspect]
     Indication: ASTHMA
     Dosage: 100MCG PER DAY
     Route: 055
     Dates: start: 20070221, end: 20070228
  2. FLUTICASONE PROPIONATE [Concomitant]
     Indication: ASTHMA
     Dosage: 400MCG PER DAY
     Route: 055
  3. ALBUTEROL [Concomitant]
     Indication: ASTHMA
     Route: 055
  4. BLOPRESS [Concomitant]
  5. ATELEC [Concomitant]
  6. URINORM [Concomitant]
  7. LIVALO [Concomitant]
  8. PARIET [Concomitant]
     Indication: ASTHMA
     Dates: start: 20070221
  9. CLARITHROMYCIN [Concomitant]
     Indication: ASTHMA
     Dosage: 40MG PER DAY
     Route: 048
     Dates: start: 20070221, end: 20070228

REACTIONS (2)
  - MUSCLE SPASMS [None]
  - MUSCULOSKELETAL STIFFNESS [None]
